FAERS Safety Report 8609708-5 (Version None)
Quarter: 2012Q3

REPORT INFORMATION
  Report Type: 
  Country: None (occurrence: None)
  Receive Date: 20120821
  Receipt Date: 20120809
  Transmission Date: 20120928
  Serious: Yes (Hospitalization, Other)
  Sender: FDA-Public Use
  Company Number: CA-BRISTOL-MYERS SQUIBB COMPANY-16202483

PATIENT
  Age: 72 Year
  Sex: Female

DRUGS (17)
  1. LYRICA [Suspect]
     Dosage: ALSO TAKEN 150MG
  2. NEXIUM [Concomitant]
  3. HYDROMORPHONE HYDROCHLORIDE [Concomitant]
  4. PREDNISONE TAB [Suspect]
     Dosage: ALSO TAKEN 15 MG
  5. ARAVA [Suspect]
  6. ALENDRONATE SODIUM [Concomitant]
  7. PRAMIPEXOLE DIHYDROCHLORIDE [Concomitant]
  8. CALCIUM [Concomitant]
  9. ATENOLOL [Concomitant]
  10. ORENCIA [Suspect]
     Indication: RHEUMATOID ARTHRITIS
     Dosage: LASTDOSE20OCT11,15DEC11,16DEC11,7FEB12,6MAR12,13JUL12 INF:11,57-500MG-Q4WK,EXP:MA2014,SEP14
     Route: 042
     Dates: start: 20110801
  11. CYMBALTA [Suspect]
  12. ACETAMINOPHEN [Concomitant]
  13. OXYBUTYNIN [Concomitant]
  14. AMILORIDE HYDROCHLORIDE [Concomitant]
  15. DILAUDID [Suspect]
  16. CALCITONIN SALMON [Concomitant]
  17. NAPROXEN [Concomitant]

REACTIONS (16)
  - ABDOMINAL PAIN [None]
  - ASTHENIA [None]
  - URINARY TRACT INFECTION [None]
  - NAUSEA [None]
  - INTESTINAL OBSTRUCTION [None]
  - DIARRHOEA [None]
  - SLEEP APNOEA SYNDROME [None]
  - ONYCHOCLASIS [None]
  - WOUND COMPLICATION [None]
  - TINNITUS [None]
  - VOMITING [None]
  - HAEMOGLOBIN DECREASED [None]
  - INFLAMMATION [None]
  - BURSITIS [None]
  - WEIGHT DECREASED [None]
  - VISUAL IMPAIRMENT [None]
